FAERS Safety Report 8554573-8 (Version None)
Quarter: 2012Q3

REPORT INFORMATION
  Report Type: 
  Country: None (occurrence: None)
  Receive Date: 20120731
  Receipt Date: 20120717
  Transmission Date: 20120928
  Serious: No
  Sender: FDA-Public Use
  Company Number: US-ENDO PHARMACEUTICALS INC.-OPCR20120803

PATIENT
  Sex: Female
  Weight: 68.1 kg

DRUGS (2)
  1. OPANA ER [Concomitant]
  2. OPANA ER [Suspect]
     Indication: PAIN
     Route: 048
     Dates: start: 20120501

REACTIONS (2)
  - DRUG EFFECT DECREASED [None]
  - DRUG INEFFECTIVE [None]
